FAERS Safety Report 6078065-3 (Version None)
Quarter: 2009Q1

REPORT INFORMATION
  Report Type: 
  Country: None (occurrence: None)
  Receive Date: 20090213
  Receipt Date: 20090202
  Transmission Date: 20090719
  Serious: Yes (Other)
  Sender: FDA-Public Use
  Company Number: JP-PFIZER INC-2009168547

PATIENT

DRUGS (4)
  1. ZOLOFT [Suspect]
     Indication: DEPRESSION
     Dosage: UNK
     Route: 048
     Dates: start: 20090105, end: 20090115
  2. DEPAKENE [Concomitant]
     Route: 048
  3. SEROQUEL [Concomitant]
     Route: 048
  4. DEPAS [Concomitant]
     Dosage: UNK
     Route: 048

REACTIONS (7)
  - ANOREXIA [None]
  - BUCCAL MUCOSAL ROUGHENING [None]
  - DIARRHOEA [None]
  - DRY MOUTH [None]
  - EYELID OEDEMA [None]
  - MUSCULOSKELETAL STIFFNESS [None]
  - OROPHARYNGEAL PAIN [None]
